FAERS Safety Report 9596633 (Version 2)
Quarter: 2013Q4

REPORT INFORMATION
  Report Type: Spontaneous
  Country: DE (occurrence: DE)
  Receive Date: 20131004
  Receipt Date: 20131004
  Transmission Date: 20140711
  Serious: Yes (Hospitalization)
  Sender: FDA-Public Use
  Company Number: DE-BRISTOL-MYERS SQUIBB COMPANY-19119718

PATIENT
  Age: 6 Year
  Sex: Male

DRUGS (1)
  1. ELIQUIS [Suspect]
     Dosage: TABLET

REACTIONS (1)
  - Accidental exposure to product by child [Unknown]
